FAERS Safety Report 6870960-8 (Version None)
Quarter: 2010Q3

REPORT INFORMATION
  Report Type: 
  Country: None (occurrence: None)
  Receive Date: 20100723
  Receipt Date: 20100713
  Transmission Date: 20110219
  Serious: Yes (Death, Life-Threatening, Hospitalization)
  Sender: FDA-Public Use
  Company Number: PT-ELI_LILLY_AND_COMPANY-PT200808000032

PATIENT
  Sex: Female
  Weight: 66 kg

DRUGS (16)
  1. GEMCITABINE HCL [Suspect]
     Indication: BREAST CANCER METASTATIC
     Dosage: 1000 MG/M2, D1 AND D8 EVERY 3 WEEKS
     Route: 042
     Dates: start: 20080530
  2. GEMCITABINE HCL [Suspect]
     Dosage: 1000 MG/M2, UNKNOWN
     Route: 042
  3. VINFLUNINE [Suspect]
     Indication: BREAST CANCER METASTATIC
     Dosage: 320 MG/M2, D1 EVERY 3 WEEKS
     Route: 042
     Dates: start: 20080530
  4. ALPRAZOLAM [Concomitant]
     Dates: start: 20080611, end: 20080701
  5. MEGESTROL [Concomitant]
     Dates: start: 20080611, end: 20080701
  6. SACCHAROMYCES BOULARDII [Concomitant]
     Dates: start: 20080611, end: 20080626
  7. CALCIUM CARBONATE [Concomitant]
     Dates: start: 20080616, end: 20080701
  8. LOSARTAN POTASSIUM AND HYDROCHLOROTHIAZIDE [Concomitant]
     Dates: start: 20080619, end: 20080624
  9. OMEPRAZOLE [Concomitant]
     Dates: start: 20080619, end: 20080701
  10. METOCLOPRAMIDE [Concomitant]
     Dates: start: 20080610, end: 20080626
  11. CALCIUM [Concomitant]
     Dates: start: 20080610, end: 20080701
  12. PARACETAMOL [Concomitant]
     Dates: start: 20080610, end: 20080701
  13. ANTIFUNGALS [Concomitant]
     Dates: start: 20080611, end: 20080626
  14. SUCRALFATE [Concomitant]
     Dates: start: 20080611, end: 20080626
  15. LANSOPRAZOLE [Concomitant]
     Dates: start: 20080101
  16. TENORMIN [Concomitant]
     Dates: start: 19960101

REACTIONS (7)
  - DIARRHOEA [None]
  - DYSPNOEA [None]
  - HYPOKALAEMIA [None]
  - HYPONATRAEMIA [None]
  - NEUTROPENIA [None]
  - NEUTROPENIC SEPSIS [None]
  - PANCYTOPENIA [None]
